FAERS Safety Report 4435318-X (Version None)
Quarter: 2004Q3

REPORT INFORMATION
  Report Type: 
  Country: None (occurrence: None)
  Receive Date: 20040826
  Receipt Date: 20040818
  Transmission Date: 20050211
  Serious: Yes (Death)
  Sender: FDA-Public Use
  Company Number: 2002000886-FJ

PATIENT
  Age: 9 Year
  Sex: Female

DRUGS (1)
  1. PROGRAF [Suspect]
     Indication: RENAL TRANSPLANT
     Dates: end: 19990707

REACTIONS (16)
  - ANAEMIA [None]
  - BLOOD ALBUMIN DECREASED [None]
  - CLOSTRIDIAL INFECTION [None]
  - DISSEMINATED INTRAVASCULAR COAGULATION [None]
  - DUODENAL ULCER [None]
  - ENTERITIS [None]
  - EPSTEIN-BARR VIRUS INFECTION [None]
  - GASTRIC ULCER [None]
  - GASTROINTESTINAL HAEMORRHAGE [None]
  - KIDNEY TRANSPLANT REJECTION [None]
  - LARGE INTESTINAL ULCER [None]
  - LYMPHOPROLIFERATIVE DISORDER [None]
  - MULTI-ORGAN FAILURE [None]
  - PYREXIA [None]
  - SMALL INTESTINAL PERFORATION [None]
  - VIRAL DNA TEST POSITIVE [None]
